FAERS Safety Report 8410050-6 (Version None)
Quarter: 2012Q2

REPORT INFORMATION
  Report Type: 
  Country: None (occurrence: None)
  Receive Date: 20120605
  Receipt Date: 20120529
  Transmission Date: 20120825
  Serious: Yes (Death, Hospitalization)
  Sender: FDA-Public Use
  Company Number: US-BAYER-2012-004053

PATIENT
  Age: 41 Year
  Sex: Female
  Weight: 63.492 kg

DRUGS (19)
  1. YASMIN [Suspect]
     Dosage: UNK
     Dates: start: 20100701, end: 20100801
  2. GEODON [Concomitant]
     Dosage: UNK MG, UNK
     Dates: start: 20110101
  3. TOPAMAX [Concomitant]
     Indication: HEADACHE
     Dosage: 100 MG, QD
     Dates: start: 20070601, end: 20081001
  4. TOPAMAX [Concomitant]
     Dosage: UNK
     Dates: start: 20091201
  5. ABILIFY [Concomitant]
     Dosage: UNK MG, UNK
     Route: 048
  6. CYMBALTA [Concomitant]
     Dosage: UNK MG, UNK
     Dates: start: 20110101
  7. HYDROCHLOROTHIAZIDE [Concomitant]
     Route: 048
  8. DROSPIRENONE AND ETHINYL ESTRADIOL [Suspect]
     Indication: PREMENSTRUAL SYNDROME
     Dosage: UNK
     Dates: start: 20101001, end: 20110101
  9. NARCAN [Concomitant]
     Dosage: UNK
     Dates: start: 20110125
  10. YAZ [Suspect]
     Indication: PREMENSTRUAL SYNDROME
     Dosage: UNK
     Dates: start: 20081101, end: 20091201
  11. DROSPIRENONE AND ETHINYL ESTRADIOL [Suspect]
     Indication: PREMENSTRUAL SYNDROME
     Dosage: UNK
     Dates: start: 20100101, end: 20100701
  12. NAMENDA [Concomitant]
     Dosage: UNK
     Dates: start: 20090701
  13. AMBIEN CR [Concomitant]
     Dosage: 12.5 MG, UNK
     Route: 048
  14. KLONOPIN [Concomitant]
     Dosage: UNK MG, UNK
     Dates: start: 20110101
  15. LAMICTAL [Concomitant]
     Dosage: UNK
  16. LYRICA [Concomitant]
     Dosage: 150 MG, UNK
     Route: 048
  17. YASMIN [Suspect]
     Indication: PREMENSTRUAL SYNDROME
     Dosage: UNK
     Route: 048
     Dates: start: 20091201, end: 20100101
  18. DROSPIRENONE AND ETHINYL ESTRADIOL [Suspect]
     Dosage: UNK
     Dates: start: 20100801, end: 20101001
  19. BUSPIRONE HCL [Concomitant]
     Dosage: 30 MG, UNK
     Route: 048

REACTIONS (3)
  - INJURY [None]
  - CEREBRAL INFARCTION [None]
  - EMOTIONAL DISTRESS [None]
